FAERS Safety Report 7150662-3 (Version None)
Quarter: 2010Q4

REPORT INFORMATION
  Report Type: 
  Country: None (occurrence: None)
  Receive Date: 20101210
  Receipt Date: 20101202
  Transmission Date: 20110411
  Serious: Yes (Hospitalization)
  Sender: FDA-Public Use
  Company Number: JP-JNJFOC-20101202844

PATIENT
  Sex: Male

DRUGS (12)
  1. TOPIRAMATE [Suspect]
     Indication: EPILEPSY
     Route: 048
  2. TOPIRAMATE [Suspect]
     Route: 048
  3. ALEVIATIN [Concomitant]
     Indication: EPILEPSY
     Route: 048
  4. LAMICTAL [Concomitant]
     Indication: EPILEPSY
     Route: 048
  5. AMARYL [Concomitant]
     Route: 048
  6. ADALAT CC [Concomitant]
     Route: 048
  7. GASPORT [Concomitant]
     Route: 048
  8. EPALRESTAT [Concomitant]
     Route: 048
  9. AZUNOL [Concomitant]
     Route: 048
  10. GLAKAY [Concomitant]
     Route: 048
  11. JANUVIA [Concomitant]
     Route: 048
  12. PLAVIX [Concomitant]
     Route: 048

REACTIONS (1)
  - HALLUCINATION, VISUAL [None]
